FAERS Safety Report 19058868 (Version 2)
Quarter: 2021Q2

REPORT INFORMATION
  Report Type: Spontaneous
  Country: US (occurrence: US)
  Receive Date: 20210325
  Receipt Date: 20210416
  Transmission Date: 20210717
  Serious: Yes (Death, Other)
  Sender: FDA-Public Use
  Company Number: US-CATALYST PHARMACEUTICALS, INC-2021CAT00107

PATIENT
  Sex: Male
  Weight: 86.18 kg

DRUGS (6)
  1. FIRDAPSE [Suspect]
     Active Substance: AMIFAMPRIDINE PHOSPHATE
     Indication: MYASTHENIC SYNDROME
     Dosage: 20 MG, 4X/DAY
     Route: 048
  2. ADDERALL [Concomitant]
     Active Substance: AMPHETAMINE ASPARTATE\AMPHETAMINE SULFATE\DEXTROAMPHETAMINE SACCHARATE\DEXTROAMPHETAMINE SULFATE
     Dosage: 12.5 MG, 1X/DAY
  3. UNSPECIFIED ADULT MULTIVITAMIN [Concomitant]
     Dosage: UNK, 1X/DAY
  4. THYROID [Concomitant]
     Active Substance: LEVOTHYROXINE\LIOTHYRONINE
     Dosage: 30 MG, 1X/DAY
  5. GAMMAGARD [Concomitant]
     Active Substance: HUMAN IMMUNOGLOBULIN G
     Dosage: 20G/200 ML INJECTION EVERY 2 WEEKS
  6. VALSARTAN. [Concomitant]
     Active Substance: VALSARTAN
     Dosage: 40 MG, 1X/DAY

REACTIONS (2)
  - Amyotrophic lateral sclerosis [Not Recovered/Not Resolved]
  - Death [Fatal]

NARRATIVE: CASE EVENT DATE: 2021
